FAERS Safety Report 5746746-4 (Version None)
Quarter: 2008Q2

REPORT INFORMATION
  Report Type: 
  Country: None (occurrence: None)
  Receive Date: 20080522
  Receipt Date: 20080515
  Transmission Date: 20081010
  Serious: Yes (Other)
  Sender: FDA-Public Use
  Company Number: GB-PFIZER INC-2008032711

PATIENT
  Sex: Male
  Weight: 98 kg

DRUGS (2)
  1. LIPITOR [Suspect]
     Indication: ATRIAL FIBRILLATION
     Route: 048
     Dates: start: 20040902, end: 20080130
  2. LIPITOR [Suspect]
     Indication: HYPERCHOLESTEROLAEMIA

REACTIONS (12)
  - ABASIA [None]
  - BACK PAIN [None]
  - BALANCE DISORDER [None]
  - DYSPNOEA [None]
  - MUSCLE ATROPHY [None]
  - MUSCLE FATIGUE [None]
  - MUSCULAR WEAKNESS [None]
  - MUSCULOSKELETAL CHEST PAIN [None]
  - MUSCULOSKELETAL PAIN [None]
  - MYALGIA [None]
  - PAIN IN EXTREMITY [None]
  - PHARMACEUTICAL PRODUCT COUNTERFEIT [None]
